FAERS Safety Report 10141914 (Version 2)
Quarter: 2014Q2

REPORT INFORMATION
  Report Type: Spontaneous
  Country: US (occurrence: US)
  Receive Date: 20140429
  Receipt Date: 20140429
  Transmission Date: 20141212
  Serious: No
  Sender: FDA-Public Use
  Company Number: US-BAXTER-2014BAX019581

PATIENT
  Sex: Female

DRUGS (2)
  1. DIANEAL LOW CALCIUM (ULTRABAG) [Suspect]
     Indication: RENAL FAILURE CHRONIC
     Route: 033
     Dates: start: 20081104
  2. DIANEAL LOW CALCIUM (ULTRABAG) [Suspect]
     Indication: RENAL FAILURE CHRONIC
     Route: 033
     Dates: start: 20081104

REACTIONS (2)
  - Muscle spasms [Recovering/Resolving]
  - Dehydration [Unknown]
